FAERS Safety Report 8146626 (Version 4)
Quarter: 2013Q1

REPORT INFORMATION
  Report Type: Spontaneous
  Country: GB (occurrence: GB)
  Receive Date: 20110921
  Receipt Date: 20130205
  Transmission Date: 20140127
  Serious: Yes (Hospitalization)
  Sender: FDA-Public Use
  Company Number: GB-ALEXION PHARMACEUTICALS INC.-A201101430

PATIENT
  Age: 20 Year
  Sex: Male

DRUGS (4)
  1. SOLIRIS 300MG [Suspect]
     Indication: PAROXYSMAL NOCTURNAL HAEMOGLOBINURIA
     Dosage: UNK
     Route: 042
     Dates: start: 20110913
  2. FOLIC ACID [Concomitant]
  3. FERROUS SULFATE [Concomitant]
  4. WARFARIN [Concomitant]
     Indication: THROMBOSIS

REACTIONS (1)
  - Meningococcal sepsis [Recovered/Resolved]
